FAERS Safety Report 13182323 (Version 1)
Quarter: 2017Q1

REPORT INFORMATION
  Report Type: Spontaneous
  Country: CA (occurrence: CA)
  Receive Date: 20170203
  Receipt Date: 20170203
  Transmission Date: 20170428
  Serious: Yes (Other)
  Sender: FDA-Public Use
  Company Number: CA-TEVA-736701ACC

PATIENT
  Age: 68 Year
  Sex: Male

DRUGS (8)
  1. ASPIRIN. [Suspect]
     Active Substance: ASPIRIN
  2. COLCHICINE. [Suspect]
     Active Substance: COLCHICINE
  3. IBUPROFEN. [Suspect]
     Active Substance: IBUPROFEN
     Indication: ARTHRALGIA
  4. DIOVAN [Suspect]
     Active Substance: VALSARTAN
     Dosage: 200 MILLIGRAM DAILY;
     Route: 048
  5. VITAMIN D [Suspect]
     Active Substance: CHOLECALCIFEROL
     Route: 065
  6. ROSUVASTATIN. [Suspect]
     Active Substance: ROSUVASTATIN
  7. METFORMIN [Suspect]
     Active Substance: METFORMIN HYDROCHLORIDE
  8. DIOVAN [Suspect]
     Active Substance: VALSARTAN
     Indication: HYPERTENSION

REACTIONS (2)
  - Tongue oedema [Unknown]
  - Lip oedema [Unknown]
